FAERS Safety Report 7007871-3 (Version None)
Quarter: 2010Q3

REPORT INFORMATION
  Report Type: 
  Country: None (occurrence: None)
  Receive Date: 20100922
  Receipt Date: 20100907
  Transmission Date: 20110219
  Serious: No
  Sender: FDA-Public Use
  Company Number: US-B.I. PHARMACEUTICALS,INC./RIDGEFIELD-2010-BP-10184BP

PATIENT
  Age: 78 Year
  Sex: Female

DRUGS (11)
  1. AGGRENOX [Suspect]
     Indication: TRANSIENT ISCHAEMIC ATTACK
     Route: 048
     Dates: start: 20100601, end: 20100801
  2. BELLADINNA [Concomitant]
     Indication: IRRITABLE BOWEL SYNDROME
  3. SIMVASTATIN [Concomitant]
     Indication: BLOOD CHOLESTEROL INCREASED
  4. PROMETRIUM [Concomitant]
     Indication: PROPHYLAXIS
  5. ESTRODIOL [Concomitant]
     Indication: SJOGREN'S SYNDROME
  6. LABETALOL HCL [Concomitant]
     Indication: HYPERTENSION
  7. SPIRONOLACTONE [Concomitant]
     Indication: HYPERTENSION
  8. DIAZEPAM [Concomitant]
     Indication: MUSCULOSKELETAL DISCOMFORT
  9. SERTRALINE HYDROCHLORIDE [Concomitant]
     Indication: FIBROMYALGIA
  10. TAMAZAPINE [Concomitant]
     Indication: SLEEP DISORDER
  11. ACIPHEX [Concomitant]
     Indication: ULCER

REACTIONS (2)
  - MUSCLE SPASMS [None]
  - PAIN IN EXTREMITY [None]
